FAERS Safety Report 14003886 (Version 2)
Quarter: 2017Q4

REPORT INFORMATION
  Report Type: Spontaneous
  Country: US (occurrence: US)
  Receive Date: 20170922
  Receipt Date: 20171121
  Transmission Date: 20180321
  Serious: No
  Sender: FDA-Public Use
  Company Number: US-JNJFOC-20170907508

PATIENT
  Age: 70 Year
  Sex: Female

DRUGS (8)
  1. NEXIUM [Concomitant]
     Active Substance: ESOMEPRAZOLE MAGNESIUM
     Indication: GASTROOESOPHAGEAL REFLUX DISEASE
     Dosage: AS NEEDED
     Route: 065
  2. SIMPONI [Suspect]
     Active Substance: GOLIMUMAB
     Indication: ANKYLOSING SPONDYLITIS
     Route: 058
     Dates: start: 2013
  3. NORTRIPTYLINE [Concomitant]
     Active Substance: NORTRIPTYLINE
     Route: 065
  4. POTASSIUM [Concomitant]
     Active Substance: POTASSIUM
     Route: 065
  5. CRESTOR [Concomitant]
     Active Substance: ROSUVASTATIN CALCIUM
     Route: 065
  6. VITAMIN D [Concomitant]
     Active Substance: CHOLECALCIFEROL
     Route: 065
  7. TRIAMTERENE. [Concomitant]
     Active Substance: TRIAMTERENE
     Dosage: EVERY OTHER DAY
     Route: 065
  8. NASACORT [Concomitant]
     Active Substance: TRIAMCINOLONE ACETONIDE
     Dosage: AS NEEDED
     Route: 045

REACTIONS (2)
  - Underdose [Unknown]
  - Device malfunction [Unknown]

NARRATIVE: CASE EVENT DATE: 20170907
